FAERS Safety Report 4655225-7 (Version None)
Quarter: 2005Q2

REPORT INFORMATION
  Report Type: 
  Country: None (occurrence: None)
  Receive Date: 20050506
  Receipt Date: 20050418
  Transmission Date: 20051028
  Serious: Yes (Life-Threatening, Disabling)
  Sender: FDA-Public Use
  Company Number: GB-GLAXOSMITHKLINE-B0378259A

PATIENT
  Age: 59 Year
  Sex: Male

DRUGS (4)
  1. AVANDAMET [Suspect]
     Route: 048
  2. INDAPAMIDE [Concomitant]
     Route: 048
     Dates: end: 20040801
  3. ASPIRIN [Concomitant]
     Route: 048
     Dates: end: 20040801
  4. COVERSYL [Concomitant]
     Route: 048
     Dates: end: 20040801

REACTIONS (7)
  - ALANINE AMINOTRANSFERASE INCREASED [None]
  - ANOREXIA [None]
  - ASPARTATE AMINOTRANSFERASE INCREASED [None]
  - BLOOD BILIRUBIN INCREASED [None]
  - CONFUSIONAL STATE [None]
  - GAMMA-GLUTAMYLTRANSFERASE INCREASED [None]
  - JAUNDICE [None]
